FAERS Safety Report 21185613 (Version 6)
Quarter: 2024Q1

REPORT INFORMATION
  Report Type: Spontaneous
  Country: CA (occurrence: CA)
  Receive Date: 20220808
  Receipt Date: 20240331
  Transmission Date: 20240410
  Serious: Yes (Other)
  Sender: FDA-Public Use
  Company Number: CA-CELLTRION INC.-2021CA008450

PATIENT

DRUGS (25)
  1. INFLECTRA [Suspect]
     Active Substance: INFLIXIMAB-DYYB
     Indication: Colitis ulcerative
     Dosage: 5 MG/KG, INDUCTION: WEEK 0, 2, 6 THEN MAINTENANCE: EVERY 8 WEEKS
     Route: 042
     Dates: start: 20210428
  2. INFLECTRA [Suspect]
     Active Substance: INFLIXIMAB-DYYB
     Dosage: 5 MG/KG, INDUCTION: WEEK 0, 2, 6 THEN MAINTENANCE: EVERY 8 WEEKS
     Route: 042
     Dates: start: 20210507
  3. INFLECTRA [Suspect]
     Active Substance: INFLIXIMAB-DYYB
     Dosage: 5 MG/KG, INDUCTION: WEEK 0, 2, 6 THEN MAINTENANCE: EVERY 8 WEEKS
     Route: 042
     Dates: start: 20210520
  4. INFLECTRA [Suspect]
     Active Substance: INFLIXIMAB-DYYB
     Dosage: 5 MG/KG, INDUCTION: WEEK 0, 2, 6 THEN MAINTENANCE: EVERY 8 WEEKS
     Route: 042
     Dates: start: 20210520
  5. INFLECTRA [Suspect]
     Active Substance: INFLIXIMAB-DYYB
     Dosage: 5 MG/KG, INDUCTION: WEEK 0, 2, 6 THEN MAINTENANCE: EVERY 8 WEEKS
     Route: 042
     Dates: start: 20210617
  6. INFLECTRA [Suspect]
     Active Substance: INFLIXIMAB-DYYB
     Dosage: 5 MG/KG, INDUCTION: WEEK 0, 2, 6 THEN MAINTENANCE: EVERY 8 WEEKS
     Route: 042
     Dates: start: 20220203
  7. INFLECTRA [Suspect]
     Active Substance: INFLIXIMAB-DYYB
     Dosage: 5 MG/KG, INDUCTION: WEEK 0, 2, 6 THEN MAINTENANCE: EVERY 8 WEEKS
     Route: 042
     Dates: start: 20220331
  8. INFLECTRA [Suspect]
     Active Substance: INFLIXIMAB-DYYB
     Dosage: 5 MG/KG, INDUCTION: WEEK 0, 2, 6 THEN MAINTENANCE: EVERY 8 WEEKS
     Route: 042
     Dates: start: 20220530
  9. INFLECTRA [Suspect]
     Active Substance: INFLIXIMAB-DYYB
     Dosage: 5 MG/KG, INDUCTION: WEEK 0, 2, 6 THEN MAINTENANCE: EVERY 8 WEEKS
     Route: 042
     Dates: start: 20220728
  10. INFLECTRA [Suspect]
     Active Substance: INFLIXIMAB-DYYB
     Dosage: 5 MG/KG, EVERY 8 WEEKS
     Route: 042
     Dates: start: 20230504
  11. INFLECTRA [Suspect]
     Active Substance: INFLIXIMAB-DYYB
     Dosage: 5 MG/KG, EVERY 8 WEEKS
     Route: 042
     Dates: start: 20230629
  12. INFLECTRA [Suspect]
     Active Substance: INFLIXIMAB-DYYB
     Dosage: 5 MG/KG, EVERY 8 WEEKS
     Route: 042
     Dates: start: 20230824
  13. INFLECTRA [Suspect]
     Active Substance: INFLIXIMAB-DYYB
     Dosage: 5 MG/KG, EVERY 8 WEEKS
     Route: 042
     Dates: start: 20231019
  14. INFLECTRA [Suspect]
     Active Substance: INFLIXIMAB-DYYB
     Dosage: 5 MG/KG, EVERY 8 WEEKS
     Route: 042
     Dates: start: 20231212
  15. INFLECTRA [Suspect]
     Active Substance: INFLIXIMAB-DYYB
     Dosage: 5 MG/KG, EVERY 8 WEEKS
     Route: 042
     Dates: start: 20240213
  16. INFLECTRA [Suspect]
     Active Substance: INFLIXIMAB-DYYB
     Dosage: 5 MG/KG, EVERY 8 WEEKS
     Route: 042
     Dates: start: 20240213
  17. ALVESCO [Concomitant]
     Active Substance: CICLESONIDE
     Dosage: UNK
  18. ASPIRIN [Concomitant]
     Active Substance: ASPIRIN
     Dosage: UNK
  19. BISOPROLOL [Concomitant]
     Active Substance: BISOPROLOL\BISOPROLOL FUMARATE
     Dosage: 5 MG, 1X/DAY
  20. MESALAMINE [Concomitant]
     Active Substance: MESALAMINE
     Dosage: UNK
  21. OZEMPIC [Concomitant]
     Active Substance: SEMAGLUTIDE
     Dosage: UNK
  22. PERINDOPRIL [Concomitant]
     Active Substance: PERINDOPRIL
     Dosage: 4 MG, 1X/DAY
  23. ALBUTEROL [Concomitant]
     Active Substance: ALBUTEROL
     Dosage: UNK
  24. MESALAMINE [Concomitant]
     Active Substance: MESALAMINE
     Dosage: UNK
  25. SIMVASTATIN [Concomitant]
     Active Substance: SIMVASTATIN
     Dosage: 80 MG, 1X/DAY

REACTIONS (9)
  - Hypertension [Not Recovered/Not Resolved]
  - Neuralgia [Recovering/Resolving]
  - Pain in extremity [Recovering/Resolving]
  - Heart rate decreased [Not Recovered/Not Resolved]
  - Condition aggravated [Recovered/Resolved]
  - Weight decreased [Unknown]
  - COVID-19 [Recovered/Resolved]
  - Incorrect dose administered [Unknown]
  - Inappropriate schedule of product administration [Unknown]

NARRATIVE: CASE EVENT DATE: 20210520
